FAERS Safety Report 8859686 (Version 1)
Quarter: 2012Q4

REPORT INFORMATION
  Report Type: 
  Country: US (occurrence: US)
  Receive Date: 20121025
  Receipt Date: 20121025
  Transmission Date: 20130627
  Serious: No
  Sender: FDA-Public Use
  Company Number: US-ABBOTT-12P-163-0900232-00

PATIENT
  Age: 54 Year
  Sex: Female
  Weight: 67.19 kg

DRUGS (1)
  1. LUPRON DEPOT 3.75 MG [Suspect]
     Indication: BREAST CANCER
     Route: 050
     Dates: start: 2011

REACTIONS (1)
  - Off label use [Unknown]
